FAERS Safety Report 10142960 (Version 2)
Quarter: 2014Q2

REPORT INFORMATION
  Report Type: Spontaneous
  Country: RU (occurrence: RU)
  Receive Date: 20140430
  Receipt Date: 20140430
  Transmission Date: 20141212
  Serious: Yes (Other)
  Sender: FDA-Public Use
  Company Number: RU-JNJFOC-20140308249

PATIENT
  Sex: 0

DRUGS (5)
  1. TOPIRAMATE [Suspect]
     Indication: PARTIAL SEIZURES
     Dosage: MEDIAN DOSE 5 MG/KG/DAY.
     Route: 048
  2. VALPROIC ACID [Suspect]
     Indication: PARTIAL SEIZURES
     Route: 065
  3. CARBAMAZEPINE [Suspect]
     Indication: PARTIAL SEIZURES
     Route: 065
  4. BARBITURATES AND DERIVATIVES [Suspect]
     Indication: PARTIAL SEIZURES
     Route: 065
  5. OXCARBAZEPINE [Suspect]
     Indication: PARTIAL SEIZURES
     Route: 065

REACTIONS (9)
  - Drug ineffective [Unknown]
  - Convulsion [Unknown]
  - Weight decreased [Unknown]
  - Abnormal behaviour [Unknown]
  - Urine oxalate [Unknown]
  - Adverse drug reaction [Recovered/Resolved]
  - Cognitive disorder [Unknown]
  - Change in sustained attention [Unknown]
  - Urine phosphorus abnormal [Unknown]
